FAERS Safety Report 5554260-4 (Version None)
Quarter: 2007Q4

REPORT INFORMATION
  Report Type: 
  Country: None (occurrence: None)
  Receive Date: 20071213
  Receipt Date: 20071207
  Transmission Date: 20080405
  Serious: Yes (Hospitalization)
  Sender: FDA-Public Use
  Company Number: A0697964A

PATIENT
  Age: 69 Year
  Sex: Female

DRUGS (5)
  1. COREG CR [Suspect]
     Dosage: 20MG PER DAY
     Route: 048
     Dates: start: 20070901
  2. BENICAR [Suspect]
  3. HYDROCHLOROTHIAZIDE [Suspect]
  4. VITAMINS [Suspect]
  5. VITAMINS [Suspect]

REACTIONS (5)
  - BLOOD POTASSIUM ABNORMAL [None]
  - BLOOD SODIUM ABNORMAL [None]
  - DIZZINESS [None]
  - DRUG INTERACTION [None]
  - VOMITING [None]
